FAERS Safety Report 4755681-X (Version None)
Quarter: 2005Q3

REPORT INFORMATION
  Report Type: 
  Country: None (occurrence: None)
  Receive Date: 20050830
  Receipt Date: 20050629
  Transmission Date: 20060218
  Serious: Yes (Hospitalization)
  Sender: FDA-Public Use
  Company Number: US-BRISTOL-MYERS SQUIBB COMPANY-13021613

PATIENT
  Age: 9 Year
  Sex: Male

DRUGS (5)
  1. ABILIFY [Suspect]
     Indication: ATTENTION DEFICIT/HYPERACTIVITY DISORDER
  2. ABILIFY [Suspect]
     Indication: BIPOLAR DISORDER
  3. SEROQUEL [Concomitant]
  4. RITALIN [Concomitant]
  5. CLONIDINE [Concomitant]

REACTIONS (1)
  - TARDIVE DYSKINESIA [None]
